FAERS Safety Report 11777333 (Version 2)
Quarter: 2016Q1

REPORT INFORMATION
  Report Type: Spontaneous
  Country: AU (occurrence: AU)
  Receive Date: 20151125
  Receipt Date: 20160128
  Transmission Date: 20160525
  Serious: Yes (Life-Threatening, Other)
  Sender: FDA-Public Use
  Company Number: AU-SA-2015SA088798

PATIENT
  Age: 50 Year
  Sex: Male

DRUGS (2)
  1. FABRAZYME [Suspect]
     Active Substance: AGALSIDASE BETA
     Indication: FABRY^S DISEASE
     Route: 041
  2. FABRAZYME [Suspect]
     Active Substance: AGALSIDASE BETA
     Indication: FABRY^S DISEASE
     Route: 041
     Dates: start: 20141022, end: 20150618

REACTIONS (12)
  - Loss of consciousness [Recovered/Resolved]
  - Stress [Recovered/Resolved]
  - Hypotension [Unknown]
  - Dyspnoea [Recovered/Resolved]
  - Hyperventilation [Recovered/Resolved]
  - Heart rate increased [Recovered/Resolved]
  - Dizziness [Unknown]
  - Tachycardia [Recovered/Resolved]
  - Chills [Recovered/Resolved]
  - Feeling cold [Recovered/Resolved]
  - Respiratory rate increased [Recovered/Resolved]
  - Flushing [Recovered/Resolved]

NARRATIVE: CASE EVENT DATE: 20150618
